FAERS Safety Report 4733834-4 (Version None)
Quarter: 2005Q3

REPORT INFORMATION
  Report Type: 
  Country: None (occurrence: None)
  Receive Date: 20050803
  Receipt Date: 20050506
  Transmission Date: 20060218
  Serious: Yes (Other)
  Sender: FDA-Public Use
  Company Number: US-MERCK-0505USA00887

PATIENT
  Sex: Female
  Weight: 114 kg

DRUGS (19)
  1. VIOXX [Suspect]
     Indication: CARPAL TUNNEL SYNDROME
     Route: 048
     Dates: start: 19990101, end: 20040901
  2. VIOXX [Suspect]
     Route: 048
  3. VIOXX [Suspect]
     Route: 048
  4. VIOXX [Suspect]
     Indication: ARTHRITIS
     Route: 048
     Dates: start: 19990101, end: 20040901
  5. VIOXX [Suspect]
     Route: 048
  6. VIOXX [Suspect]
     Route: 048
  7. VASOTEC RPD [Concomitant]
     Indication: HYPERTENSION
     Route: 065
     Dates: end: 20050101
  8. TOPROL-XL [Concomitant]
     Route: 065
  9. CALAN [Concomitant]
     Route: 065
  10. ASPIRIN [Concomitant]
     Route: 065
  11. LIPITOR [Concomitant]
     Indication: BLOOD CHOLESTEROL INCREASED
     Route: 065
  12. CENESTIN [Concomitant]
     Indication: HORMONE REPLACEMENT THERAPY
     Route: 065
     Dates: start: 20010101
  13. GLUCOPHAGE [Concomitant]
     Indication: DIABETES MELLITUS
     Route: 065
  14. INSULIN [Concomitant]
     Indication: DIABETES MELLITUS
     Route: 065
  15. PYRIDOXINE [Concomitant]
     Route: 065
  16. VITAMIN E [Concomitant]
     Route: 065
  17. VITAMIN B (UNSPECIFIED) [Concomitant]
     Route: 065
  18. FUROSEMIDE [Concomitant]
     Route: 065
     Dates: start: 19990101
  19. DYAZIDE [Concomitant]
     Route: 065
     Dates: start: 19990101

REACTIONS (6)
  - ARTHRALGIA [None]
  - ASTHENIA [None]
  - CEREBROVASCULAR ACCIDENT [None]
  - DIABETIC NEUROPATHY [None]
  - SWELLING [None]
  - TRANSIENT ISCHAEMIC ATTACK [None]
